FAERS Safety Report 9052044 (Version 1)
Quarter: 2013Q1

REPORT INFORMATION
  Report Type: Spontaneous
  Country: FR (occurrence: FR)
  Receive Date: 20130207
  Receipt Date: 20130207
  Transmission Date: 20140127
  Serious: Yes (Hospitalization)
  Sender: FDA-Public Use
  Company Number: FR-JNJFOC-20130116067

PATIENT
  Age: 23 Year
  Sex: Female

DRUGS (8)
  1. REMICADE [Suspect]
     Indication: CROHN^S DISEASE
     Route: 042
     Dates: start: 20091208, end: 20101025
  2. DIACOMIT [Concomitant]
     Route: 065
  3. MICROPAKINE [Concomitant]
     Route: 065
  4. NORSET [Concomitant]
     Route: 065
  5. URBANYL [Concomitant]
     Route: 065
  6. XANAX [Concomitant]
     Dosage: 0.25 TWO AT NIGHT
     Route: 065
  7. AERIUS [Concomitant]
     Route: 065
  8. SINGULAIR [Concomitant]
     Route: 065

REACTIONS (3)
  - Psoriasis [Recovered/Resolved]
  - Anaemia macrocytic [Not Recovered/Not Resolved]
  - Keratitis [Recovered/Resolved]
